FAERS Safety Report 7707357-4 (Version None)
Quarter: 2011Q3

REPORT INFORMATION
  Report Type: 
  Country: None (occurrence: None)
  Receive Date: 20110824
  Receipt Date: 20110819
  Transmission Date: 20111222
  Serious: Yes (Death, Other)
  Sender: FDA-Public Use
  Company Number: GB-PFIZER INC-2011193234

PATIENT
  Age: 57 Year
  Sex: Female
  Weight: 74 kg

DRUGS (14)
  1. INFLUENZA VACCINE (SPLIT VIRION, INACTIVATED) [Suspect]
     Indication: IMMUNISATION
     Dosage: UNK
     Dates: start: 20101023, end: 20101023
  2. CETIRIZINE HYDROCHLORIDE [Concomitant]
     Dosage: 10 MG, UNK
     Route: 048
     Dates: start: 20100831
  3. DERMOL SOL [Concomitant]
     Dosage: UNK
     Dates: start: 20090923
  4. EPADERM [Concomitant]
     Dosage: UNK
     Dates: start: 20090710
  5. SYMBICORT [Concomitant]
     Dosage: 2 DF, UNK
     Dates: start: 20101004
  6. PIPERACILLIN AND TAZOBACTAM [Suspect]
  7. ALENDRONIC ACID [Concomitant]
     Dosage: 70 MG, UNK
     Route: 048
     Dates: start: 20101025
  8. OMEPRAZOLE [Concomitant]
     Dosage: 20 MG, UNK
     Route: 048
     Dates: start: 20101025
  9. ADCAL-D3 [Concomitant]
     Dosage: 1 DF, UNK
     Dates: start: 20090710
  10. AMITRIPTYLINE [Concomitant]
     Dosage: 10 MG, UNK
     Route: 048
     Dates: start: 20100412
  11. BETAMETHASONE VALERATE [Concomitant]
     Dosage: UNK
     Dates: start: 20100831
  12. SULFASALAZINE [Suspect]
     Indication: RHEUMATOID ARTHRITIS
  13. VENTOLIN [Concomitant]
     Dosage: 2 DF, 100MCG / INHALATION
     Dates: start: 20100607
  14. CHLORPHENAMINE [Concomitant]
     Dosage: 4 MG, UNK
     Route: 048
     Dates: start: 20100118

REACTIONS (16)
  - SENSITISATION [None]
  - LIVER INJURY [None]
  - PALLOR [None]
  - MALAISE [None]
  - PAIN [None]
  - VOMITING [None]
  - CARDIAC ARREST [None]
  - PYREXIA [None]
  - SWOLLEN TONGUE [None]
  - HYPERHIDROSIS [None]
  - ANAPHYLACTIC REACTION [None]
  - CREPITATIONS [None]
  - DRUG RASH WITH EOSINOPHILIA AND SYSTEMIC SYMPTOMS [None]
  - DYSPNOEA [None]
  - DEHYDRATION [None]
  - INFECTION [None]
